FAERS Safety Report 9529729 (Version 3)
Quarter: 2013Q4

REPORT INFORMATION
  Report Type: Report from Study
  Country: AR (occurrence: AR)
  Receive Date: 20130917
  Receipt Date: 20131231
  Transmission Date: 20140711
  Serious: Yes (Hospitalization, Other)
  Sender: FDA-Public Use
  Company Number: PHHY2013AR103034

PATIENT
  Sex: Female

DRUGS (2)
  1. DIOVAN D [Suspect]
     Indication: HYPERTENSION
     Dosage: 1 DF (320 MG VALS/12.5MG HYDRO) DAILY
     Route: 048
  2. EXFORGE [Suspect]
     Indication: HYPERTENSION
     Dosage: UNK UKN, UNK
     Route: 048

REACTIONS (7)
  - Cerebrovascular accident [Recovering/Resolving]
  - Arterial occlusive disease [Recovering/Resolving]
  - Bronchitis [Recovering/Resolving]
  - Blood pressure diastolic decreased [Recovering/Resolving]
  - Memory impairment [Unknown]
  - Venous occlusion [Unknown]
  - Delirium [Unknown]
